FAERS Safety Report 6629526-7 (Version None)
Quarter: 2010Q1

REPORT INFORMATION
  Report Type: 
  Country: None (occurrence: None)
  Receive Date: 20100311
  Receipt Date: 20090721
  Transmission Date: 20100710
  Serious: No
  Sender: FDA-Public Use
  Company Number: US-BIOGENIDEC-2009BI022828

PATIENT
  Age: 52 Year
  Sex: Female

DRUGS (2)
  1. AVONEX [Suspect]
     Indication: MULTIPLE SCLEROSIS
     Route: 030
     Dates: end: 20070101
  2. AVONEX [Suspect]
     Route: 030
     Dates: start: 20090601

REACTIONS (2)
  - INFLUENZA LIKE ILLNESS [None]
  - PREMENSTRUAL SYNDROME [None]
